FAERS Safety Report 6368634-5 (Version None)
Quarter: 2009Q3

REPORT INFORMATION
  Report Type: 
  Country: None (occurrence: None)
  Receive Date: 20090922
  Receipt Date: 20090914
  Transmission Date: 20100115
  Serious: Yes (Other)
  Sender: FDA-Public Use
  Company Number: US-JNJFOC-20090904693

PATIENT
  Age: 32 Year
  Sex: Female
  Weight: 77.11 kg

DRUGS (22)
  1. TOPAMAX [Suspect]
     Indication: MIGRAINE PROPHYLAXIS
     Route: 048
  2. TOPIRAMATE [Suspect]
     Indication: MIGRAINE PROPHYLAXIS
     Route: 048
  3. WELLBUTRIN [Concomitant]
     Indication: DEPRESSION
     Route: 048
  4. SYNTHROID [Concomitant]
     Indication: HYPOTHYROIDISM
     Route: 048
  5. XYZAL [Concomitant]
     Indication: MULTIPLE ALLERGIES
     Route: 048
  6. SINGULAIR [Concomitant]
     Indication: ASTHMA
     Route: 048
  7. SKELAXIN [Concomitant]
     Indication: PAIN
     Route: 065
  8. ZOFRAN [Concomitant]
     Indication: NAUSEA
     Route: 048
  9. REGLAN [Concomitant]
     Indication: GASTRIC DISORDER
     Route: 048
  10. PHENOBARBITAL [Concomitant]
     Indication: GASTRIC DISORDER
     Route: 048
  11. XOPENEX [Concomitant]
     Indication: ASTHMA
     Route: 055
  12. MECLIZINE [Concomitant]
     Indication: DIZZINESS
     Route: 048
  13. OMNARIS [Concomitant]
     Indication: MULTIPLE ALLERGIES
     Route: 045
  14. ATARAX [Concomitant]
     Indication: INFECTION
     Route: 061
  15. SILVADENE [Concomitant]
     Indication: INFECTION
     Route: 061
  16. VITAMIN B-12 [Concomitant]
     Indication: INFECTION
     Route: 065
  17. NEURONTIN [Concomitant]
     Indication: NERVE INJURY
     Route: 048
  18. IBUPROFEN [Concomitant]
     Indication: PAIN
     Route: 048
  19. GAVISCON /01764701/ [Concomitant]
     Indication: GASTRIC DISORDER
     Route: 048
  20. PROBIOTICS [Concomitant]
     Indication: MEDICAL DIET
     Route: 048
  21. ZOVIRAX [Concomitant]
     Indication: ANTIVIRAL PROPHYLAXIS
     Route: 048
  22. ACIPHEX [Concomitant]
     Indication: GASTRIC DISORDER
     Route: 048

REACTIONS (10)
  - CARPAL TUNNEL SYNDROME [None]
  - COELIAC DISEASE [None]
  - FOOD ALLERGY [None]
  - FOOT FRACTURE [None]
  - IMPAIRED GASTRIC EMPTYING [None]
  - LOCALISED INFECTION [None]
  - MIGRAINE [None]
  - NERVE INJURY [None]
  - PATHOGEN RESISTANCE [None]
  - VIRAL INFECTION [None]
